FAERS Safety Report 15384840 (Version 1)
Quarter: 2018Q3

REPORT INFORMATION
  Report Type: Report from Study
  Country: US (occurrence: US)
  Receive Date: 20180914
  Receipt Date: 20180914
  Transmission Date: 20181010
  Serious: No
  Sender: FDA-Public Use
  Company Number: US-THERATECHNOLOGIES, INC.-TH-2018-00361

PATIENT

DRUGS (1)
  1. EGRIFTA [Suspect]
     Active Substance: TESAMORELIN
     Dosage: UNK
     Dates: start: 201807

REACTIONS (3)
  - Swelling [Recovered/Resolved]
  - Abdominal distension [Recovered/Resolved]
  - Insulin-like growth factor increased [Recovered/Resolved]

NARRATIVE: CASE EVENT DATE: 201808
